FAERS Safety Report 4479642-3 (Version None)
Quarter: 2004Q4

REPORT INFORMATION
  Report Type: 
  Country: None (occurrence: None)
  Receive Date: 20041018
  Receipt Date: 20041004
  Transmission Date: 20050328
  Serious: Yes (Death, Other)
  Sender: FDA-Public Use
  Company Number: 2004063581

PATIENT
  Age: 62 Year
  Sex: Male

DRUGS (1)
  1. CITALOR (ATORVASTATIN) [Suspect]
     Indication: DYSLIPIDAEMIA
     Dosage: 10 MG (10 MG 1 IN 1 D); ORAL
     Route: 048
     Dates: start: 20020601

REACTIONS (2)
  - ACUTE MYOCARDIAL INFARCTION [None]
  - RESPIRATORY ARREST [None]
